FAERS Safety Report 9717171 (Version 2)
Quarter: 2013Q4

REPORT INFORMATION
  Report Type: Spontaneous
  Country: DE (occurrence: DE)
  Receive Date: 20131127
  Receipt Date: 20131210
  Transmission Date: 20140711
  Serious: Yes (Life-Threatening, Hospitalization)
  Sender: FDA-Public Use
  Company Number: DE-B.I. PHARMACEUTICALS,INC./RIDGEFIELD-2013-BI-38901DE

PATIENT
  Age: 69 Year
  Sex: Male
  Weight: 105 kg

DRUGS (2)
  1. PRADAXA [Suspect]
     Indication: ATRIAL FIBRILLATION
     Dosage: 300 MG
  2. PRADAXA [Suspect]
     Indication: CEREBROVASCULAR ACCIDENT

REACTIONS (4)
  - Confusional state [Recovered/Resolved with Sequelae]
  - Infarction [Recovered/Resolved with Sequelae]
  - Cerebrovascular accident [Unknown]
  - Intracardiac thrombus [Unknown]
